FAERS Safety Report 8273936-1 (Version None)
Quarter: 2012Q2

REPORT INFORMATION
  Report Type: 
  Country: None (occurrence: None)
  Receive Date: 20120411
  Receipt Date: 20120330
  Transmission Date: 20120825
  Serious: Yes (Hospitalization)
  Sender: FDA-Public Use
  Company Number: US-ELI_LILLY_AND_COMPANY-US201108000732

PATIENT
  Sex: Female

DRUGS (27)
  1. FORTEO [Suspect]
     Dosage: 20 UG, QD
     Route: 065
  2. ATENOLOL [Concomitant]
  3. VITAMIN B-12 [Concomitant]
  4. SOLU-CORTEF [Concomitant]
  5. VICODIN [Concomitant]
     Dosage: UNK, PRN
  6. MORPHINE [Concomitant]
     Dosage: UNK, PRN
  7. SOLU-MEDROL [Concomitant]
  8. ASPIRIN [Concomitant]
  9. ONGLYZA [Concomitant]
  10. CALCIUM CARBONATE [Concomitant]
  11. POTASSIUM CITRATE [Concomitant]
  12. OMEPRAZOLE [Concomitant]
  13. KLOR-CON [Concomitant]
  14. ZOLOFT [Concomitant]
  15. FENTANYL [Concomitant]
  16. FORTEO [Suspect]
     Indication: OSTEOPOROSIS
     Dosage: 20 UG, QD
     Route: 065
     Dates: start: 20110401
  17. FORTEO [Suspect]
     Dosage: 20 UG, QD
     Route: 065
  18. FORTEO [Suspect]
     Dosage: 20 UG, QD
     Route: 065
  19. PRAVACHOL [Concomitant]
  20. PILOCARPINE [Concomitant]
  21. RESTASIS [Concomitant]
  22. VITAMIN D [Concomitant]
  23. FORTEO [Suspect]
     Dosage: 20 UG, QD
     Route: 065
  24. PREDNISONE [Concomitant]
  25. PRIMIDONE [Concomitant]
  26. FISH OIL [Concomitant]
  27. IRON [Concomitant]

REACTIONS (8)
  - VERTIGO [None]
  - CONTUSION [None]
  - STRESS FRACTURE [None]
  - DIZZINESS [None]
  - SPINAL FUSION SURGERY [None]
  - PAIN IN EXTREMITY [None]
  - INJECTION SITE HAEMATOMA [None]
  - INJECTION SITE HAEMORRHAGE [None]
